FAERS Safety Report 6304382-5 (Version None)
Quarter: 2009Q3

REPORT INFORMATION
  Report Type: 
  Country: None (occurrence: None)
  Receive Date: 20090811
  Receipt Date: 20090729
  Transmission Date: 20100115
  Serious: Yes (Hospitalization)
  Sender: FDA-Public Use
  Company Number: PHHY2009JP30569

PATIENT
  Age: 47 Year
  Sex: Male

DRUGS (2)
  1. DIOVAN [Suspect]
     Dosage: 7200 MG, UNK
     Route: 048
  2. AMLODIPINE BESYLATE [Suspect]
     Dosage: 90 TABLETS 450 MG
     Route: 048

REACTIONS (8)
  - HAEMODIALYSIS [None]
  - HEART RATE INCREASED [None]
  - HYPOTENSION [None]
  - LOSS OF CONSCIOUSNESS [None]
  - OLIGURIA [None]
  - OVERDOSE [None]
  - RENAL IMPAIRMENT [None]
  - SHOCK [None]
